FAERS Safety Report 8899781 (Version 1)
Quarter: 2012Q4

REPORT INFORMATION
  Report Type: 
  Country: US (occurrence: US)
  Receive Date: 20121108
  Receipt Date: 20121108
  Transmission Date: 20130627
  Serious: No
  Sender: FDA-Public Use
  Company Number: US-AMGEN-USASP2012032352

PATIENT
  Age: 63 Year
  Sex: Female
  Weight: 70.3 kg

DRUGS (9)
  1. ENBREL [Suspect]
     Indication: PRODUCT USED FOR UNKNOWN INDICATION
     Dosage: 50 mg, qwk
     Route: 058
  2. MELOXICAM [Concomitant]
     Dosage: 7.5 mg, UNK
  3. METHOTREXATE [Concomitant]
     Dosage: 2.5 mg, UNK
  4. LISINOPRIL [Concomitant]
     Dosage: 10 mg, UNK
  5. LEVOTHYROXIN [Concomitant]
     Dosage: 50 mug, UNK
  6. CALCIUM + VITAMIN D                /01483701/ [Concomitant]
     Dosage: UNK
  7. MULTIVITAMIN                       /00097801/ [Concomitant]
     Dosage: UNK
  8. LEUCOVORIN /00566701/ [Concomitant]
     Dosage: 200 mg, UNK
  9. HYDROCHLOROTHIAZIDE WITH TRIAMTERENE [Concomitant]
     Dosage: UNK

REACTIONS (1)
  - Drug ineffective [Unknown]
